FAERS Safety Report 18174872 (Version 2)
Quarter: 2020Q3

REPORT INFORMATION
  Report Type: Spontaneous
  Country: HU (occurrence: HU)
  Receive Date: 20200820
  Receipt Date: 20200824
  Transmission Date: 20201103
  Serious: Yes (Death)
  Sender: FDA-Public Use
  Company Number: HU-ROCHE-2659135

PATIENT
  Age: 66 Year
  Sex: Female

DRUGS (1)
  1. OCREVUS [Suspect]
     Active Substance: OCRELIZUMAB
     Indication: PRIMARY PROGRESSIVE MULTIPLE SCLEROSIS
     Route: 065
     Dates: start: 20181030

REACTIONS (4)
  - Pulmonary oedema [Fatal]
  - Arteriosclerosis coronary artery [Fatal]
  - Brain oedema [Fatal]
  - Brain herniation [Fatal]

NARRATIVE: CASE EVENT DATE: 20200630
